FAERS Safety Report 8056392-8 (Version None)
Quarter: 2012Q1

REPORT INFORMATION
  Report Type: 
  Country: None (occurrence: None)
  Receive Date: 20120119
  Receipt Date: 20120118
  Transmission Date: 20120608
  Serious: Yes (Hospitalization)
  Sender: FDA-Public Use
  Company Number: US-ROCHE-1029327

PATIENT
  Sex: Female
  Weight: 103.97 kg

DRUGS (6)
  1. IMURAN [Concomitant]
     Indication: RHEUMATOID ARTHRITIS
  2. PREDNISONE TAB [Concomitant]
     Indication: RHEUMATOID ARTHRITIS
  3. RITUXAN [Suspect]
     Indication: RHEUMATOID ARTHRITIS
     Route: 042
     Dates: start: 20070601, end: 20120103
  4. LOSARTAN POTASSIUM [Concomitant]
     Indication: HYPERTENSION
  5. CYMBALTA [Concomitant]
     Indication: FIBROMA
  6. LYRICA [Concomitant]
     Indication: FIBROMA

REACTIONS (5)
  - INFECTION [None]
  - COLITIS [None]
  - VASCULITIS [None]
  - PYREXIA [None]
  - RASH [None]
